FAERS Safety Report 25048776 (Version 1)
Quarter: 2025Q1

REPORT INFORMATION
  Report Type: Spontaneous
  Country: US (occurrence: US)
  Receive Date: 20250307
  Receipt Date: 20250307
  Transmission Date: 20250409
  Serious: Yes (Hospitalization, Other)
  Sender: ALEMBIC
  Company Number: US-MLMSERVICE-20250212-PI407065-00176-1

PATIENT

DRUGS (3)
  1. HYDROCHLOROTHIAZIDE [Suspect]
     Active Substance: HYDROCHLOROTHIAZIDE
     Indication: Product used for unknown indication
     Route: 048
  2. SEMAGLUTIDE [Concomitant]
     Active Substance: SEMAGLUTIDE
     Indication: Type 1 diabetes mellitus
     Route: 065
     Dates: end: 202301
  3. SEMAGLUTIDE [Concomitant]
     Active Substance: SEMAGLUTIDE

REACTIONS (6)
  - Acute kidney injury [Recovering/Resolving]
  - Pancreatitis acute [Recovered/Resolved]
  - Pancreatitis relapsing [Recovered/Resolved]
  - Hypokalaemia [Recovering/Resolving]
  - Hyperglycaemia [Unknown]
  - Hypercalcaemia [Unknown]

NARRATIVE: CASE EVENT DATE: 20230101
